FAERS Safety Report 5604816-5 (Version None)
Quarter: 2008Q1

REPORT INFORMATION
  Report Type: 
  Country: None (occurrence: None)
  Receive Date: 20080128
  Receipt Date: 20080117
  Transmission Date: 20080703
  Serious: No
  Sender: FDA-Public Use
  Company Number: AU-GENENTECH-251280

PATIENT
  Age: 42 Year
  Sex: Female

DRUGS (2)
  1. LUCENTIS [Suspect]
     Indication: CHOROIDAL NEOVASCULARISATION
     Dosage: UNK, UNK
     Route: 031
     Dates: start: 20070608
  2. LEVLEN 28 [Suspect]
     Indication: DRUG USE FOR UNKNOWN INDICATION
     Dosage: UNK, QD

REACTIONS (2)
  - AMENORRHOEA [None]
  - MENORRHAGIA [None]
